FAERS Safety Report 25820170 (Version 2)
Quarter: 2025Q3

REPORT INFORMATION
  Report Type: Spontaneous
  Country: JP (occurrence: JP)
  Receive Date: 20250919
  Receipt Date: 20250923
  Transmission Date: 20251020
  Serious: Yes (Hospitalization)
  Sender: TAKEDA
  Company Number: JP-TAKEDA-2025TJP009466

PATIENT
  Age: 47 Year
  Sex: Female

DRUGS (5)
  1. INTUNIV [Suspect]
     Active Substance: GUANFACINE HYDROCHLORIDE
     Indication: Attention deficit hyperactivity disorder
     Dosage: UNK UNK, QD
  2. INTUNIV [Suspect]
     Active Substance: GUANFACINE HYDROCHLORIDE
  3. REXULTI [Suspect]
     Active Substance: BREXPIPRAZOLE
     Indication: Product used for unknown indication
  4. REXULTI [Suspect]
     Active Substance: BREXPIPRAZOLE
  5. DEPAS [Concomitant]

REACTIONS (1)
  - Akathisia [Recovering/Resolving]

NARRATIVE: CASE EVENT DATE: 20250909
